FAERS Safety Report 23875237 (Version 1)
Quarter: 2024Q2

REPORT INFORMATION
  Report Type: Spontaneous
  Country: US (occurrence: None)
  Receive Date: 20240519
  Receipt Date: 20240519
  Transmission Date: 20240716
  Serious: Yes (Disabling)
  Sender: FDA-Public Use
  Company Number: None

PATIENT
  Age: 85 Year
  Sex: Male
  Weight: 94.35 kg

DRUGS (4)
  1. PLUVICTO [Suspect]
     Active Substance: LUTETIUM LU-177 VIPIVOTIDE TETRAXETAN
     Indication: Prostate cancer metastatic
     Dates: start: 20230610, end: 20240101
  2. PREDNISONE [Concomitant]
     Active Substance: PREDNISONE
  3. METOPROLOL [Concomitant]
     Active Substance: METOPROLOL
  4. LIPITOR [Concomitant]
     Active Substance: ATORVASTATIN CALCIUM

REACTIONS (1)
  - Nephrotic syndrome [None]

NARRATIVE: CASE EVENT DATE: 20230610
